FAERS Safety Report 21497323 (Version 3)
Quarter: 2023Q1

REPORT INFORMATION
  Report Type: Spontaneous
  Country: NL (occurrence: NL)
  Receive Date: 20221023
  Receipt Date: 20230329
  Transmission Date: 20230417
  Serious: Yes (Hospitalization)
  Sender: FDA-Public Use
  Company Number: NL-BIOGEN-2022BI01163311

PATIENT
  Age: 41 Year
  Sex: Female

DRUGS (2)
  1. DALFAMPRIDINE [Suspect]
     Active Substance: DALFAMPRIDINE
     Indication: Multiple sclerosis
     Route: 050
     Dates: start: 20191101, end: 20220927
  2. DALFAMPRIDINE [Suspect]
     Active Substance: DALFAMPRIDINE
     Route: 050
     Dates: start: 201902, end: 20220902

REACTIONS (2)
  - Cardiac failure congestive [Recovered/Resolved]
  - Congestive cardiomyopathy [Recovered/Resolved]

NARRATIVE: CASE EVENT DATE: 20220927
